FAERS Safety Report 6425016-5 (Version None)
Quarter: 2009Q4

REPORT INFORMATION
  Report Type: 
  Country: None (occurrence: None)
  Receive Date: 20091103
  Receipt Date: 20091028
  Transmission Date: 20100525
  Serious: Yes (Hospitalization)
  Sender: FDA-Public Use
  Company Number: GXKR2008GB07696

PATIENT
  Age: 83 Year
  Sex: Female

DRUGS (3)
  1. WARFARIN (NGX) [Suspect]
     Dosage: 2 MG, QD
     Route: 065
     Dates: start: 20010101, end: 20080805
  2. LANSOPRAZOLE [Interacting]
     Indication: DYSPEPSIA
     Dosage: 30 MG, QD
     Route: 048
     Dates: start: 20080725
  3. GALANTAMINE HYDROBROMIDE [Concomitant]

REACTIONS (3)
  - DRUG INTERACTION [None]
  - HAEMATURIA [None]
  - INTERNATIONAL NORMALISED RATIO INCREASED [None]
